FAERS Safety Report 9552393 (Version 1)
Quarter: 2013Q3

REPORT INFORMATION
  Report Type: Spontaneous
  Country: US (occurrence: None)
  Receive Date: 20130729
  Receipt Date: 20130729
  Transmission Date: 20140515
  Serious: Yes (Hospitalization)
  Sender: FDA-Public Use
  Company Number: 1208USA004680

PATIENT
  Age: 59 Year
  Sex: 0

DRUGS (2)
  1. VICTRELIS (BOCEPREVIR)CAPSULE, 200MG [Suspect]
     Dates: start: 201206, end: 2012
  2. REBETOL (RIBAVIRIN)CAPSULE [Suspect]

REACTIONS (1)
  - Anaemia [None]
